FAERS Safety Report 6703584-3 (Version None)
Quarter: 2010Q2

REPORT INFORMATION
  Report Type: 
  Country: None (occurrence: None)
  Receive Date: 20100430
  Receipt Date: 20100427
  Transmission Date: 20101027
  Serious: Yes (Hospitalization)
  Sender: FDA-Public Use
  Company Number: US-BRISTOL-MYERS SQUIBB COMPANY-15046089

PATIENT
  Age: 56 Year
  Sex: Female
  Weight: 60 kg

DRUGS (6)
  1. ERBITUX [Suspect]
     Indication: COLON CANCER
     Dosage: ON DAY 1, 8, AND 15; LAST DOSE ON 22-MAR-2010(INTERRUPTED)
     Route: 040
     Dates: start: 20091130
  2. EVEROLIMUS [Suspect]
     Indication: COLON CANCER
     Dosage: LAST DOSE ON 28-MAR-2010(INTERRUPTED DATE)
     Route: 048
     Dates: start: 20091130
  3. CAMPTOSAR [Suspect]
     Indication: COLON CANCER
     Dosage: ON DAYS 1 AND 8; LAST DOSE ON 22-MAR-2010(INTERRUPTED)
     Route: 042
     Dates: start: 20091130
  4. ZOFRAN [Concomitant]
     Route: 048
  5. IMODIUM [Concomitant]
  6. LOMOTIL [Concomitant]

REACTIONS (6)
  - DIARRHOEA [None]
  - FATIGUE [None]
  - HYPOKALAEMIA [None]
  - HYPONATRAEMIA [None]
  - NAUSEA [None]
  - VOMITING [None]
